FAERS Safety Report 8709021 (Version 7)
Quarter: 2013Q1

REPORT INFORMATION
  Report Type: Report from Study
  Country: CA (occurrence: CA)
  Receive Date: 20120806
  Receipt Date: 20130313
  Transmission Date: 20140127
  Serious: Yes (Hospitalization, Other)
  Sender: FDA-Public Use
  Company Number: CA-ROCHE-1095175

PATIENT
  Age: 69 Year
  Sex: Male

DRUGS (10)
  1. ZELBORAF [Suspect]
     Indication: METASTATIC MALIGNANT MELANOMA
     Route: 048
     Dates: start: 20120724, end: 201303
  2. TRIDURAL [Suspect]
     Indication: NEURALGIA
     Route: 048
     Dates: start: 201208, end: 201210
  3. TRIDURAL [Suspect]
     Route: 048
     Dates: start: 201301
  4. TRAMADOL [Suspect]
     Indication: NEURALGIA
     Route: 048
     Dates: start: 201208, end: 201210
  5. TRAMADOL [Suspect]
     Route: 048
     Dates: start: 201301
  6. ASPIRIN [Concomitant]
     Route: 065
  7. RAMIPRIL [Concomitant]
     Route: 065
  8. SALMON OIL [Concomitant]
  9. TRIDURAL [Concomitant]
  10. TRAMADOL [Concomitant]

REACTIONS (13)
  - Prostatic disorder [Unknown]
  - Bladder disorder [Unknown]
  - Urinary bladder haemorrhage [Unknown]
  - Prostatic haemorrhage [Unknown]
  - Neuralgia [Not Recovered/Not Resolved]
  - Haematuria [Recovered/Resolved]
  - Disease progression [Unknown]
  - Back pain [Unknown]
  - Vomiting [Recovered/Resolved]
  - Nausea [Unknown]
  - Kidney infection [Recovering/Resolving]
  - Rash [Unknown]
  - Bladder telangiectasia [Unknown]
